FAERS Safety Report 6369847-9 (Version None)
Quarter: 2009Q3

REPORT INFORMATION
  Report Type: 
  Country: None (occurrence: None)
  Receive Date: 20090923
  Receipt Date: 20070509
  Transmission Date: 20100115
  Serious: Yes (Other)
  Sender: FDA-Public Use
  Company Number: US-ASTRAZENECA-2006UW11168

PATIENT
  Age: 39 Year
  Sex: Female
  Weight: 79.8 kg

DRUGS (17)
  1. SEROQUEL [Suspect]
     Indication: DEPRESSION
     Dosage: TOTAL DAILY DOSE 600 MG
     Route: 048
     Dates: start: 20000101, end: 20050101
  2. SEROQUEL [Suspect]
     Indication: INSOMNIA
     Dosage: TOTAL DAILY DOSE 600 MG
     Route: 048
     Dates: start: 20000101, end: 20050101
  3. SEROQUEL [Suspect]
     Dosage: 25 MG-800 MG
     Route: 048
     Dates: start: 20040226
  4. SEROQUEL [Suspect]
     Dosage: 25 MG-800 MG
     Route: 048
     Dates: start: 20040226
  5. ZYPREXA [Suspect]
     Dosage: TOTAL DAILY DOSE 7.5 MG
     Dates: start: 20000101, end: 20050101
  6. ABILIFY [Concomitant]
     Dates: start: 20060801
  7. ATIVAN [Concomitant]
  8. VISTARIL [Concomitant]
  9. DESYREL [Concomitant]
  10. LAMICTAL [Concomitant]
  11. GEODON [Concomitant]
  12. ZOLOFT [Concomitant]
  13. WELLBUTRIN [Concomitant]
  14. NEURONTIN [Concomitant]
  15. PAXIL [Concomitant]
  16. ADALAT [Concomitant]
  17. ALBUTEROL [Concomitant]

REACTIONS (3)
  - BLOOD CHOLESTEROL INCREASED [None]
  - HYPERLIPIDAEMIA [None]
  - PANCREATITIS [None]
